FAERS Safety Report 5130827-2 (Version None)
Quarter: 2006Q4

REPORT INFORMATION
  Report Type: 
  Country: None (occurrence: None)
  Receive Date: 20061013
  Receipt Date: 20060930
  Transmission Date: 20070319
  Serious: Yes (Hospitalization, Other)
  Sender: FDA-Public Use
  Company Number: 2006094787

PATIENT
  Age: 46 Year
  Weight: 100.2 kg

DRUGS (3)
  1. CHANTIX [Suspect]
     Indication: SMOKING CESSATION THERAPY
  2. BENICAR HCT (HYDROCHLOROTHIAZDE, OLMESARTAN) [Concomitant]
  3. LEXAPRO [Concomitant]

REACTIONS (5)
  - ATRIAL FIBRILLATION [None]
  - BLOOD TRIGLYCERIDES INCREASED [None]
  - HAEMATOCRIT DECREASED [None]
  - HIGH DENSITY LIPOPROTEIN DECREASED [None]
  - MIDDLE INSOMNIA [None]
